FAERS Safety Report 8270711-9 (Version None)
Quarter: 2012Q2

REPORT INFORMATION
  Report Type: 
  Country: None (occurrence: None)
  Receive Date: 20120410
  Receipt Date: 20120319
  Transmission Date: 20120825
  Serious: Yes (Other)
  Sender: FDA-Public Use
  Company Number: US-ENDO PHARMACEUTICALS INC.-OPGN20110004

PATIENT
  Sex: Female

DRUGS (2)
  1. OPANA [Suspect]
     Indication: ADNEXA UTERI PAIN
     Route: 048
     Dates: end: 20120316
  2. OXYMORPHONE HYDROCHLORIDE [Suspect]
     Indication: ADNEXA UTERI PAIN
     Dosage: UNKNOWN
     Route: 048

REACTIONS (5)
  - CONDITION AGGRAVATED [None]
  - INAPPROPRIATE SCHEDULE OF DRUG ADMINISTRATION [None]
  - TOOTH INJURY [None]
  - PULMONARY OEDEMA [None]
  - OVARIAN CYST [None]
